FAERS Safety Report 9565595 (Version 5)
Quarter: 2014Q2

REPORT INFORMATION
  Report Type: Spontaneous
  Country: FR (occurrence: FR)
  Receive Date: 20130930
  Receipt Date: 20140528
  Transmission Date: 20141212
  Serious: Yes (Death, Hospitalization, Other)
  Sender: FDA-Public Use
  Company Number: FR-PFIZER INC-2013269330

PATIENT
  Age: 3 Day
  Sex: Male
  Weight: 2.87 kg

DRUGS (13)
  1. PRODILANTIN [Suspect]
     Indication: CONVULSION
     Dosage: 43 MG, SINGLE LOADING DOSE
     Route: 042
     Dates: start: 20130812, end: 20130812
  2. PRODILANTIN [Suspect]
     Dosage: 14.4 MG (5 MG/KG), SINGLE
     Route: 042
     Dates: start: 20130813, end: 20130813
  3. PRODILANTIN [Suspect]
     Dosage: 144 MG, SINGLE
     Route: 042
     Dates: start: 20130813, end: 20130813
  4. PRODILANTIN [Suspect]
     Dosage: 144 MG, SINGLE
     Route: 042
     Dates: start: 20130813, end: 20130813
  5. PRODILANTIN [Suspect]
     Dosage: 14.4 MG, SINGLE
     Route: 042
     Dates: start: 20130814, end: 20130814
  6. RIVOTRIL [Concomitant]
     Indication: HYPOTONIA
     Dosage: UNK
     Dates: start: 20130810
  7. GARDENALE [Concomitant]
     Indication: HYPOTONIA
     Dosage: UNK
     Dates: start: 20130810
  8. AMOXICILLIN [Concomitant]
     Indication: ANTIBIOTIC THERAPY
     Dosage: UNK
     Dates: start: 20130810
  9. CLAFORAN [Concomitant]
     Indication: ANTIBIOTIC THERAPY
     Dosage: UNK
     Dates: start: 20130810
  10. AMIKLIN [Concomitant]
     Indication: ANTIBIOTIC THERAPY
     Dosage: UNK
     Dates: start: 20130810
  11. PYRIDOXINE [Concomitant]
     Indication: CONVULSION
     Dosage: UNK
     Dates: start: 20130812
  12. BIOTIN [Concomitant]
     Indication: CONVULSION
     Dosage: UNK
     Dates: start: 20130812
  13. FOLIC ACID [Concomitant]
     Indication: CONVULSION
     Dosage: UNK
     Dates: start: 20130812

REACTIONS (6)
  - Accidental overdose [Fatal]
  - Metabolic acidosis [Fatal]
  - Hyperglycaemia [Fatal]
  - Hyperkalaemia [Fatal]
  - Hypocalcaemia [Fatal]
  - Renal failure acute [Fatal]
